FAERS Safety Report 9122971 (Version 1)
Quarter: 2013Q1

REPORT INFORMATION
  Report Type: Spontaneous
  Country: US (occurrence: US)
  Receive Date: 20130227
  Receipt Date: 20130227
  Transmission Date: 20140127
  Serious: No
  Sender: FDA-Public Use
  Company Number: US-GLAXOSMITHKLINE-A1003606A

PATIENT
  Age: 58 Year
  Sex: Female
  Weight: 54.5 kg

DRUGS (4)
  1. VALTREX [Suspect]
     Indication: HERPES ZOSTER
     Dosage: 1000MG THREE TIMES PER DAY
     Route: 048
     Dates: start: 20121011
  2. AMPYRA [Suspect]
     Indication: MULTIPLE SCLEROSIS
     Dosage: 10MG TWICE PER DAY
     Route: 048
     Dates: start: 201207
  3. SYNTHROID [Concomitant]
  4. DULERA [Concomitant]

REACTIONS (1)
  - Pollakiuria [Not Recovered/Not Resolved]
